FAERS Safety Report 8802076 (Version 2)
Quarter: 2012Q4

REPORT INFORMATION
  Report Type: 
  Country: US (occurrence: US)
  Receive Date: 20120921
  Receipt Date: 20121022
  Transmission Date: 20130627
  Serious: Yes (Hospitalization)
  Sender: FDA-Public Use
  Company Number: US-BAYER-2012-097950

PATIENT
  Age: 20 Year
  Sex: Female

DRUGS (7)
  1. YAZ [Suspect]
  2. YASMIN [Suspect]
  3. OCELLA [Suspect]
  4. FERROUS SULFATE [Concomitant]
     Dosage: 525 mg, UNK
     Route: 048
  5. ICY HOT [Concomitant]
     Route: 061
  6. ADVIL [Concomitant]
     Dosage: UNK UNK, PRN
  7. IRON [Concomitant]
     Indication: ANAEMIA
     Dosage: 325 mg, BID

REACTIONS (2)
  - Injury [None]
  - Deep vein thrombosis [None]
